FAERS Safety Report 13737602 (Version 1)
Quarter: 2017Q3

REPORT INFORMATION
  Report Type: Spontaneous
  Country: US (occurrence: US)
  Receive Date: 20170710
  Receipt Date: 20170710
  Transmission Date: 20171127
  Serious: Yes (Hospitalization)
  Sender: FDA-Public Use
  Company Number: US-SAOL THERAPEUTICS-2016SAO01107

PATIENT
  Age: 46 Year
  Sex: Male
  Weight: 79.82 kg

DRUGS (3)
  1. LIORESAL [Suspect]
     Active Substance: BACLOFEN
     Indication: SPINAL CORD INJURY
  2. NORCO [Concomitant]
     Active Substance: ACETAMINOPHEN\HYDROCODONE BITARTRATE
     Dosage: UNK, AS NEEDED
  3. LIORESAL [Suspect]
     Active Substance: BACLOFEN
     Indication: MUSCLE SPASTICITY
     Dosage: 290 ?G, \DAY
     Route: 037

REACTIONS (4)
  - Hypotonia [Unknown]
  - Device failure [Unknown]
  - Asthenia [Unknown]
  - Unevaluable event [Unknown]

NARRATIVE: CASE EVENT DATE: 201611
